FAERS Safety Report 7058551-X (Version None)
Quarter: 2010Q4

REPORT INFORMATION
  Report Type: 
  Country: None (occurrence: None)
  Receive Date: 20101022
  Receipt Date: 20101015
  Transmission Date: 20110411
  Serious: Yes (Hospitalization)
  Sender: FDA-Public Use
  Company Number: A0810225A

PATIENT
  Age: 49 Year
  Sex: Female

DRUGS (1)
  1. AVANDIA [Suspect]
     Indication: TYPE 2 DIABETES MELLITUS
     Dosage: 8MG PER DAY
     Route: 048
     Dates: start: 20020201, end: 20060201

REACTIONS (11)
  - CARDIAC FAILURE CONGESTIVE [None]
  - CARDIAC OPERATION [None]
  - CORONARY ARTERY DISEASE [None]
  - CORONARY ARTERY OCCLUSION [None]
  - CORONARY ARTERY STENOSIS [None]
  - DEPRESSION [None]
  - EJECTION FRACTION DECREASED [None]
  - HYPERTENSION [None]
  - MUSCULOSKELETAL CHEST PAIN [None]
  - POSTOPERATIVE RESPIRATORY DISTRESS [None]
  - PULMONARY OEDEMA [None]
